FAERS Safety Report 12521105 (Version 1)
Quarter: 2016Q3

REPORT INFORMATION
  Report Type: Report from Study
  Country: BR (occurrence: BR)
  Receive Date: 20160701
  Receipt Date: 20160701
  Transmission Date: 20161109
  Serious: Yes (Other)
  Sender: FDA-Public Use
  Company Number: BR-JNJFOC-20160627737

PATIENT
  Sex: Female

DRUGS (4)
  1. ARAVA [Concomitant]
     Active Substance: LEFLUNOMIDE
     Route: 065
  2. SIMPONI [Suspect]
     Active Substance: GOLIMUMAB
     Indication: RHEUMATOID ARTHRITIS
     Route: 058
     Dates: start: 20160607
  3. DIPYRONE [Concomitant]
     Active Substance: DIPYRONE
     Route: 065
  4. CETANOL [Concomitant]
     Route: 065

REACTIONS (2)
  - Blood pressure fluctuation [Unknown]
  - Influenza [Unknown]

NARRATIVE: CASE EVENT DATE: 2016
